FAERS Safety Report 8517639-4 (Version None)
Quarter: 2012Q3

REPORT INFORMATION
  Report Type: 
  Country: None (occurrence: None)
  Receive Date: 20120718
  Receipt Date: 20120716
  Transmission Date: 20120928
  Serious: No
  Sender: FDA-Public Use
  Company Number: US-BAYER-2012-070752

PATIENT
  Age: 33 Year
  Sex: Male

DRUGS (3)
  1. MAGNEVIST [Suspect]
     Indication: FOOT FRACTURE
  2. REMICADE [Concomitant]
     Indication: CROHN'S DISEASE
  3. MAGNEVIST [Suspect]
     Indication: NUCLEAR MAGNETIC RESONANCE IMAGING
     Dosage: 20 ML, ONCE
     Dates: start: 20120716, end: 20120716

REACTIONS (1)
  - BURNING SENSATION [None]
